FAERS Safety Report 7689237-6 (Version None)
Quarter: 2011Q3

REPORT INFORMATION
  Report Type: 
  Country: None (occurrence: None)
  Receive Date: 20110817
  Receipt Date: 20110808
  Transmission Date: 20111222
  Serious: No
  Sender: FDA-Public Use
  Company Number: FR-JNJFOC-20110703537

PATIENT
  Age: 46 Year
  Sex: Female
  Weight: 64 kg

DRUGS (11)
  1. REMICADE [Suspect]
     Indication: PSORIASIS
     Route: 042
     Dates: start: 20090101, end: 20110701
  2. REMICADE [Suspect]
     Indication: PSORIATIC ARTHROPATHY
     Route: 042
     Dates: start: 20090101, end: 20110701
  3. LOMEXIN [Concomitant]
     Route: 048
     Dates: start: 20080101
  4. ZOLPIDEM [Concomitant]
     Route: 048
     Dates: start: 20100101
  5. ATARAX [Concomitant]
     Route: 048
     Dates: start: 20080101
  6. DICETEL [Concomitant]
     Route: 048
     Dates: start: 20080101
  7. LEVOTHYROXINE SODIUM [Concomitant]
     Route: 048
     Dates: start: 20080101
  8. ACETAMINOPHEN AND CODEINE PHOSPHATE [Concomitant]
     Route: 048
     Dates: start: 20080101
  9. CRESTOR [Concomitant]
     Route: 048
     Dates: start: 20080101
  10. CYMBALTA [Concomitant]
     Route: 048
     Dates: start: 20100101
  11. OXAZEPAM [Concomitant]
     Route: 048
     Dates: start: 20080101

REACTIONS (1)
  - WEIGHT INCREASED [None]
